FAERS Safety Report 19423261 (Version 1)
Quarter: 2021Q2

REPORT INFORMATION
  Report Type: Spontaneous
  Country: US (occurrence: US)
  Receive Date: 20210616
  Receipt Date: 20210616
  Transmission Date: 20210717
  Serious: No
  Sender: FDA-Public Use
  Company Number: US-PFIZER INC-2021556549

PATIENT
  Age: 62 Year
  Sex: Male
  Weight: 95.25 kg

DRUGS (3)
  1. ALPRAZOLAM. [Suspect]
     Active Substance: ALPRAZOLAM
     Dosage: 2 MG, 1X/DAY
  2. ALPRAZOLAM. [Suspect]
     Active Substance: ALPRAZOLAM
     Dosage: 0.5 MG (AT NIGHT)
  3. ALPRAZOLAM. [Suspect]
     Active Substance: ALPRAZOLAM
     Dosage: 0.5 MG (IN THE MORNING)

REACTIONS (8)
  - Chest pain [Unknown]
  - Abdominal pain upper [Unknown]
  - Intentional product misuse [Unknown]
  - Headache [Unknown]
  - Dizziness [Unknown]
  - Feeling abnormal [Unknown]
  - Off label use [Unknown]
  - Poor quality sleep [Unknown]
